FAERS Safety Report 5924915-8 (Version None)
Quarter: 2008Q4

REPORT INFORMATION
  Report Type: 
  Country: None (occurrence: None)
  Receive Date: 20081017
  Receipt Date: 20081017
  Transmission Date: 20090506
  Serious: Yes (Other)
  Sender: FDA-Public Use
  Company Number: None

PATIENT
  Age: 5 Year
  Sex: Female
  Weight: 20.4119 kg

DRUGS (2)
  1. CEFZIL [Suspect]
     Indication: COUGH
     Dosage: 1 SP 2 TIMES DAILY PO
     Route: 048
     Dates: start: 20081004, end: 20081014
  2. CEFZIL [Suspect]
     Indication: EAR INFECTION
     Dosage: 1 SP 2 TIMES DAILY PO
     Route: 048
     Dates: start: 20081004, end: 20081014

REACTIONS (4)
  - ABDOMINAL DISCOMFORT [None]
  - JOINT SWELLING [None]
  - PRURITUS [None]
  - URTICARIA [None]
